FAERS Safety Report 16763959 (Version 3)
Quarter: 2019Q3

REPORT INFORMATION
  Report Type: Spontaneous
  Country: TR (occurrence: TR)
  Receive Date: 20190902
  Receipt Date: 20190925
  Transmission Date: 20191005
  Serious: Yes (Other)
  Sender: FDA-Public Use
  Company Number: TR-GLAXOSMITHKLINE-TR2019GSK137819

PATIENT
  Age: 30 Year
  Sex: Female

DRUGS (2)
  1. ALLERGODIL [Concomitant]
     Active Substance: AZELASTINE
     Indication: PRODUCT USED FOR UNKNOWN INDICATION
     Dosage: UNK
  2. FLIXONASE NASAL [Suspect]
     Active Substance: FLUTICASONE PROPIONATE
     Indication: NASAL POLYPS
     Dosage: UNK

REACTIONS (6)
  - Nasal injury [Recovered/Resolved]
  - Haemoptysis [Recovered/Resolved]
  - Peripheral swelling [Recovered/Resolved]
  - Product dose omission [Unknown]
  - Nasal polyps [Recovering/Resolving]
  - Pharyngeal injury [Recovered/Resolved]
